FAERS Safety Report 7705576-4 (Version None)
Quarter: 2011Q3

REPORT INFORMATION
  Report Type: 
  Country: None (occurrence: None)
  Receive Date: 20110824
  Receipt Date: 20110811
  Transmission Date: 20111222
  Serious: Yes (Hospitalization, Other)
  Sender: FDA-Public Use
  Company Number: US-SANOFI-AVENTIS-2011SA050298

PATIENT
  Age: 60 Year
  Sex: Female
  Weight: 63.95 kg

DRUGS (29)
  1. AMLODIPINE BESYLATE [Suspect]
     Route: 048
     Dates: start: 20100719, end: 20100721
  2. XANAX [Suspect]
     Route: 065
  3. HYDROCHLOROTHIAZIDE [Suspect]
     Route: 065
  4. NEBIVOLOL HCL [Suspect]
     Route: 065
  5. BACTRIM [Suspect]
     Route: 065
  6. ATACAND [Suspect]
     Route: 065
  7. LEVOTHYROXINE SODIUM [Concomitant]
  8. DEPAKOTE [Suspect]
     Route: 065
     Dates: start: 19960101
  9. AMLODIPINE BESYLATE [Suspect]
     Dosage: PATIENT WAS CUTTING 5 MG INTO HALF AND THEN TAKING IT
     Route: 048
  10. LISINOPRIL [Suspect]
     Route: 065
  11. LEVAQUIN [Suspect]
     Route: 065
  12. FUROSEMIDE [Suspect]
     Route: 065
  13. BENICAR [Suspect]
     Route: 048
     Dates: start: 20070101
  14. AMLODIPINE BESYLATE [Suspect]
     Dosage: PATIENT WAS CUTTING 5 MG INTO HALF AND THEN TAKING IT
     Route: 048
     Dates: start: 20100722
  15. AMLODIPINE BESYLATE [Suspect]
     Route: 048
     Dates: start: 19970101
  16. METOCLOPRAMIDE [Suspect]
     Route: 065
  17. LIDOCAINE [Suspect]
     Indication: INGROWING NAIL
     Route: 065
     Dates: start: 20100513, end: 20100513
  18. AMLODIPINE BESYLATE [Suspect]
     Route: 048
     Dates: start: 19950101
  19. AMLODIPINE BESYLATE [Suspect]
     Route: 048
     Dates: start: 20100101
  20. VALSARTAN [Suspect]
     Route: 065
  21. LIDOCAINE [Suspect]
     Route: 065
     Dates: start: 20100513, end: 20100513
  22. MACROBID [Suspect]
     Route: 065
  23. CIPROFLOXACIN [Suspect]
     Route: 065
  24. AVAPRO [Suspect]
     Indication: HYPERTENSION
     Route: 065
  25. PHENYTOIN SODIUM [Suspect]
     Route: 065
     Dates: start: 19960101
  26. LOSARTAN POTASSIUM [Suspect]
     Route: 065
  27. CARDIZEM [Suspect]
     Route: 065
  28. CLONIDINE [Concomitant]
     Indication: BLOOD PRESSURE ABNORMAL
  29. ATACAND [Suspect]
     Route: 065

REACTIONS (15)
  - BURNING SENSATION [None]
  - PALPITATIONS [None]
  - BLOOD COUNT ABNORMAL [None]
  - BLOOD PRESSURE INCREASED [None]
  - LOSS OF CONSCIOUSNESS [None]
  - HEADACHE [None]
  - FULL BLOOD COUNT DECREASED [None]
  - DIZZINESS [None]
  - CHOLECYSTECTOMY [None]
  - CYSTITIS [None]
  - TOE OPERATION [None]
  - INGROWING NAIL [None]
  - ARTERIOSCLEROSIS CORONARY ARTERY [None]
  - WEIGHT DECREASED [None]
  - ABDOMINAL DISTENSION [None]
